FAERS Safety Report 11840080 (Version 1)
Quarter: 2015Q4

REPORT INFORMATION
  Report Type: Spontaneous
  Country: IL (occurrence: IL)
  Receive Date: 20151216
  Receipt Date: 20151216
  Transmission Date: 20160305
  Serious: Yes (Death)
  Sender: FDA-Public Use
  Company Number: IL-BAYER-2015-489202

PATIENT
  Age: 58 Year
  Sex: Male

DRUGS (2)
  1. XOFIGO [Suspect]
     Active Substance: RADIUM RA-223 DICHLORIDE
     Indication: METASTASES TO LYMPH NODES
  2. XOFIGO [Suspect]
     Active Substance: RADIUM RA-223 DICHLORIDE
     Indication: HORMONE-REFRACTORY PROSTATE CANCER
     Dosage: HAD 3 CYCLES/TREATMENTS OF XOFIGO
     Dates: start: 201509, end: 201511

REACTIONS (3)
  - Urinary tract stoma complication [Fatal]
  - Infection [Fatal]
  - Leukocytosis [None]

NARRATIVE: CASE EVENT DATE: 2015
